FAERS Safety Report 5801823-4 (Version None)
Quarter: 2008Q3

REPORT INFORMATION
  Report Type: 
  Country: None (occurrence: None)
  Receive Date: 20080707
  Receipt Date: 20080624
  Transmission Date: 20090109
  Serious: Yes (Death, Life-Threatening, Hospitalization, Disabling)
  Sender: FDA-Public Use
  Company Number: US-MERCK-0805USA05118

PATIENT
  Age: 67 Year
  Sex: Male
  Weight: 105 kg

DRUGS (12)
  1. CANCIDAS [Suspect]
     Route: 042
  2. FUROSEMIDE [Concomitant]
     Route: 042
  3. INSULIN [Concomitant]
     Route: 065
  4. DIFLUCAN [Concomitant]
     Route: 042
  5. ZOSYN [Concomitant]
     Route: 065
  6. SOLU-MEDROL [Concomitant]
     Route: 042
  7. [THERAPY UNSPECIFIED] [Concomitant]
     Route: 065
  8. ATROVENT [Concomitant]
     Route: 065
  9. METOPROLOL [Concomitant]
     Route: 065
  10. PRIMAXIN [Concomitant]
     Route: 065
  11. PROTONIX [Concomitant]
     Route: 065
  12. CLINDAMYCIN [Concomitant]
     Route: 065

REACTIONS (3)
  - ACUTE RESPIRATORY DISTRESS SYNDROME [None]
  - CHRONIC OBSTRUCTIVE PULMONARY DISEASE [None]
  - PULMONARY OEDEMA [None]
